FAERS Safety Report 10297896 (Version 2)
Quarter: 2014Q3

REPORT INFORMATION
  Report Type: Spontaneous
  Country: AU (occurrence: AU)
  Receive Date: 20140711
  Receipt Date: 20140711
  Transmission Date: 20150326
  Serious: Yes (Hospitalization, Other)
  Sender: FDA-Public Use
  Company Number: AU-AMGEN-AUSSP2014046302

PATIENT
  Age: 78 Year
  Sex: Male

DRUGS (7)
  1. COLOXYL WITH SENNA [Concomitant]
     Active Substance: DOCUSATE\SENNOSIDES
  2. XGEVA [Suspect]
     Active Substance: DENOSUMAB
     Indication: PRODUCT USED FOR UNKNOWN INDICATION
     Dosage: UNK
     Route: 065
     Dates: start: 20131216
  3. CADUET [Concomitant]
     Active Substance: AMLODIPINE BESYLATE\ATORVASTATIN CALCIUM
  4. CALTRATE                           /00944201/ [Concomitant]
  5. NOTEN [Concomitant]
     Active Substance: ATENOLOL
  6. ABIRATERONE [Concomitant]
     Active Substance: ABIRATERONE
  7. PREDNISOLONE. [Concomitant]
     Active Substance: PREDNISOLONE

REACTIONS (3)
  - Tremor [Unknown]
  - Asthenia [Unknown]
  - Hypocalcaemia [Not Recovered/Not Resolved]
